FAERS Safety Report 21501232 (Version 1)
Quarter: 2022Q4

REPORT INFORMATION
  Report Type: Spontaneous
  Country: JP (occurrence: JP)
  Receive Date: 20221025
  Receipt Date: 20221025
  Transmission Date: 20230112
  Serious: Yes (Death, Hospitalization, Other)
  Sender: FDA-Public Use
  Company Number: JP-NBI-J202217832BIPI

PATIENT
  Age: 82 Year
  Sex: Female

DRUGS (1)
  1. IDARUCIZUMAB [Suspect]
     Active Substance: IDARUCIZUMAB
     Indication: Procoagulant therapy
     Route: 042
     Dates: start: 20221019, end: 20221020

REACTIONS (2)
  - Gastrointestinal necrosis [Fatal]
  - Septic shock [Fatal]

NARRATIVE: CASE EVENT DATE: 20221019
